FAERS Safety Report 15356929 (Version 1)
Quarter: 2018Q3

REPORT INFORMATION
  Report Type: Spontaneous
  Country: NL (occurrence: NL)
  Receive Date: 20180906
  Receipt Date: 20180906
  Transmission Date: 20181010
  Serious: Yes (Other)
  Sender: FDA-Public Use
  Company Number: NL-MACLEODS PHARMACEUTICALS US LTD-MAC2018016495

PATIENT

DRUGS (1)
  1. QUETIAPINE. [Suspect]
     Active Substance: QUETIAPINE
     Indication: SCHIZOPHRENIA
     Dosage: UNK, FOR FIVE YEARS
     Route: 065

REACTIONS (3)
  - Pancreatitis [Unknown]
  - Thrombotic thrombocytopenic purpura [Unknown]
  - Hypertriglyceridaemia [Unknown]
